FAERS Safety Report 19487453 (Version 1)
Quarter: 2021Q3

REPORT INFORMATION
  Report Type: Spontaneous
  Country: US (occurrence: US)
  Receive Date: 20210702
  Receipt Date: 20210702
  Transmission Date: 20211014
  Serious: No
  Sender: FDA-Public Use
  Company Number: US-009507513-2106USA007870

PATIENT
  Age: 71 Year
  Sex: Female

DRUGS (2)
  1. LENVIMA [Suspect]
     Active Substance: LENVATINIB
     Indication: ENDOMETRIAL CANCER
     Dosage: 20 MILLIGRAM, QD
     Dates: start: 20210527, end: 20210615
  2. KEYTRUDA [Suspect]
     Active Substance: PEMBROLIZUMAB
     Indication: ENDOMETRIAL CANCER
     Dosage: UNK
     Dates: start: 20210527, end: 20210615

REACTIONS (3)
  - Colitis [Unknown]
  - Gait inability [Unknown]
  - Feeding disorder [Unknown]

NARRATIVE: CASE EVENT DATE: 20210615
